FAERS Safety Report 10234138 (Version 1)
Quarter: 2014Q2

REPORT INFORMATION
  Report Type: Spontaneous
  Country: US (occurrence: US)
  Receive Date: 20140612
  Receipt Date: 20140612
  Transmission Date: 20141212
  Serious: Yes (Other)
  Sender: FDA-Public Use
  Company Number: US-GLAXOSMITHKLINE-A1076709A

PATIENT
  Age: 51 Year
  Sex: Male

DRUGS (1)
  1. PROMACTA [Suspect]
     Indication: PLATELET COUNT DECREASED
     Route: 065

REACTIONS (1)
  - Haemorrhage [Unknown]
